FAERS Safety Report 8044161-4 (Version None)
Quarter: 2012Q1

REPORT INFORMATION
  Report Type: 
  Country: None (occurrence: None)
  Receive Date: 20120113
  Receipt Date: 20120103
  Transmission Date: 20120608
  Serious: Yes (Hospitalization)
  Sender: FDA-Public Use
  Company Number: FR-UCBSA-032428

PATIENT
  Age: 41 Year
  Sex: Male

DRUGS (2)
  1. CIMZIA [Suspect]
     Route: 058
     Dates: start: 20101105, end: 20101201
  2. CIMZIA [Suspect]
     Route: 058
     Dates: start: 20101201, end: 20110308

REACTIONS (8)
  - DIARRHOEA [None]
  - DEPRESSION [None]
  - STAPHYLOCOCCAL INFECTION [None]
  - PHOTOPHOBIA [None]
  - PSOAS ABSCESS [None]
  - WEIGHT DECREASED [None]
  - INTERVERTEBRAL DISCITIS [None]
  - VOMITING [None]
